FAERS Safety Report 4617478-0 (Version None)
Quarter: 2005Q1

REPORT INFORMATION
  Report Type: 
  Country: None (occurrence: None)
  Receive Date: 20050324
  Receipt Date: 20050110
  Transmission Date: 20050727
  Serious: Yes (Death, Other)
  Sender: FDA-Public Use
  Company Number: US-BRISTOL-MYERS SQUIBB COMPANY-12819769

PATIENT
  Age: 61 Year
  Sex: Male

DRUGS (1)
  1. CYTOXAN [Suspect]
     Indication: VASCULITIS
     Route: 048
     Dates: start: 20040808, end: 20040827

REACTIONS (4)
  - NECROSIS [None]
  - SEPSIS [None]
  - THROMBOCYTOPENIA [None]
  - VASCULITIS [None]
